FAERS Safety Report 4528574-0 (Version None)
Quarter: 2004Q4

REPORT INFORMATION
  Report Type: 
  Country: None (occurrence: None)
  Receive Date: 20041216
  Receipt Date: 20041207
  Transmission Date: 20050328
  Serious: Yes (Death, Other)
  Sender: FDA-Public Use
  Company Number: PHBS2004NO16618

PATIENT
  Age: 100 Year
  Sex: Female

DRUGS (6)
  1. VOLTAREN [Suspect]
     Indication: ARTHRALGIA
     Dosage: 50 MG, BID
     Route: 048
     Dates: start: 20041011, end: 20041016
  2. COZAAR [Concomitant]
     Indication: HYPERTENSION
     Dates: start: 20031013, end: 20041016
  3. ALBYL-E [Suspect]
     Indication: ATRIAL FIBRILLATION
     Dosage: 75 MG/DAY
     Route: 048
     Dates: start: 20031013, end: 20041016
  4. FUROSEMIDE [Concomitant]
     Indication: HYPERTENSION
     Dosage: 20 MG/DAY
     Route: 048
  5. DUROFERON [Concomitant]
     Indication: ANAEMIA
     Dosage: 100 MG/DAY
     Route: 048
  6. PARACETAMOL [Concomitant]
     Indication: PAIN
     Dosage: 1 G, QID
     Route: 048
     Dates: start: 20041011, end: 20041016

REACTIONS (6)
  - BLOOD CREATININE INCREASED [None]
  - C-REACTIVE PROTEIN INCREASED [None]
  - HAEMATEMESIS [None]
  - HAEMOGLOBIN DECREASED [None]
  - MELAENA [None]
  - RENAL FAILURE ACUTE [None]
